FAERS Safety Report 20638841 (Version 2)
Quarter: 2022Q4

REPORT INFORMATION
  Report Type: Report from Study
  Country: US (occurrence: US)
  Receive Date: 20220325
  Receipt Date: 20221011
  Transmission Date: 20230113
  Serious: Yes (Hospitalization, Other)
  Sender: FDA-Public Use
  Company Number: US-JAZZ-2022-US-008844

PATIENT
  Age: 32 Year
  Sex: Female

DRUGS (8)
  1. XYREM [Suspect]
     Active Substance: SODIUM OXYBATE
     Indication: Narcolepsy
     Dosage: 2.25G BID FOR 7 DAYS, 3G BID FOR 7 DAYS, 2.75G BID
     Route: 048
     Dates: start: 202107, end: 202109
  2. XYREM [Suspect]
     Active Substance: SODIUM OXYBATE
     Indication: Cataplexy
     Dosage: 3.75G BID AT BEDTIME
     Route: 048
     Dates: start: 202109
  3. XYREM [Suspect]
     Active Substance: SODIUM OXYBATE
     Indication: Somnolence
  4. LAMICTAL [Concomitant]
     Active Substance: LAMOTRIGINE
     Dosage: 0000
     Dates: start: 20210802
  5. OXYCODONE HYDROCHLORIDE [Concomitant]
     Active Substance: OXYCODONE HYDROCHLORIDE
     Dosage: 0000
     Dates: start: 20220218
  6. TYLENOL [Concomitant]
     Active Substance: ACETAMINOPHEN
     Dosage: 0000
     Dates: start: 20220218
  7. IBUPROFEN [Concomitant]
     Active Substance: IBUPROFEN
     Dosage: 0000
     Dates: start: 20220218
  8. CIPRO [Concomitant]
     Active Substance: CIPROFLOXACIN HYDROCHLORIDE
     Dosage: UNK
     Dates: start: 20220916

REACTIONS (3)
  - Hysterectomy [Recovering/Resolving]
  - Abdominal abscess [Recovering/Resolving]
  - Sepsis [Unknown]

NARRATIVE: CASE EVENT DATE: 20220218
